FAERS Safety Report 5206519-8 (Version None)
Quarter: 2006Q4

REPORT INFORMATION
  Report Type: 
  Country: None (occurrence: None)
  Receive Date: 20061026
  Receipt Date: 20060824
  Transmission Date: 20070319
  Serious: No
  Sender: FDA-Public Use
  Company Number: 2006104681

PATIENT
  Sex: Male

DRUGS (1)
  1. LYRICA [Suspect]
     Indication: NEUROPATHY
     Dosage: 75 MG (75 MG UNKNOWN)
     Route: 065
     Dates: end: 20060801

REACTIONS (2)
  - AGGRESSION [None]
  - AGITATION [None]
